FAERS Safety Report 22788721 (Version 2)
Quarter: 2025Q2

REPORT INFORMATION
  Report Type: Spontaneous
  Country: ES (occurrence: ES)
  Receive Date: 20230804
  Receipt Date: 20250605
  Transmission Date: 20250716
  Serious: Yes (Hospitalization, Other)
  Sender: PFIZER
  Company Number: ES-Accord-369344

PATIENT
  Age: 62 Year
  Sex: Male
  Weight: 88 kg

DRUGS (17)
  1. GEMCITABINE HYDROCHLORIDE [Suspect]
     Active Substance: GEMCITABINE HYDROCHLORIDE
     Indication: Ductal adenocarcinoma of pancreas
     Dates: start: 20230508, end: 20230508
  2. GEMCITABINE HYDROCHLORIDE [Suspect]
     Active Substance: GEMCITABINE HYDROCHLORIDE
     Dates: start: 20230516, end: 20230516
  3. GEMCITABINE HYDROCHLORIDE [Suspect]
     Active Substance: GEMCITABINE HYDROCHLORIDE
     Dates: start: 20230522, end: 20230522
  4. GEMCITABINE HYDROCHLORIDE [Suspect]
     Active Substance: GEMCITABINE HYDROCHLORIDE
     Dates: start: 20230605, end: 20230605
  5. GEMCITABINE HYDROCHLORIDE [Suspect]
     Active Substance: GEMCITABINE HYDROCHLORIDE
     Dates: start: 20230612, end: 20230612
  6. GEMCITABINE HYDROCHLORIDE [Suspect]
     Active Substance: GEMCITABINE HYDROCHLORIDE
     Dates: start: 20230619
  7. PACLITAXEL [Suspect]
     Active Substance: PACLITAXEL
     Indication: Ductal adenocarcinoma of pancreas
     Dates: start: 20230508, end: 20230508
  8. PACLITAXEL [Suspect]
     Active Substance: PACLITAXEL
     Dates: start: 20230516, end: 20230516
  9. PACLITAXEL [Suspect]
     Active Substance: PACLITAXEL
     Dates: start: 20230522, end: 20230522
  10. PACLITAXEL [Suspect]
     Active Substance: PACLITAXEL
     Dates: start: 20230605, end: 20230605
  11. PACLITAXEL [Suspect]
     Active Substance: PACLITAXEL
     Dates: start: 20230612, end: 20230612
  12. PACLITAXEL [Suspect]
     Active Substance: PACLITAXEL
     Dates: start: 20230619
  13. ACETAMINOPHEN [Concomitant]
     Active Substance: ACETAMINOPHEN
     Indication: Headache
     Dosage: 1 G, 3X/DAY (1 GM, 3 IN 1 D)
     Route: 048
     Dates: start: 20230511
  14. PANCRELIPASE [Concomitant]
     Active Substance: PANCRELIPASE
     Indication: Prophylaxis against gastrointestinal ulcer
     Route: 048
     Dates: start: 20230508
  15. ENOXAPARIN [Concomitant]
     Active Substance: ENOXAPARIN
     Indication: Thrombosis prophylaxis
     Dosage: 120 MG, 1X/DAY (1 IN 1 D)
     Route: 058
     Dates: start: 20230503
  16. BISOPROLOL [Concomitant]
     Active Substance: BISOPROLOL
     Indication: Tachycardia
     Dosage: 2.5 MG, (2.5 MG 1 IN 1 D)
     Route: 048
     Dates: start: 202301
  17. OMEPRAZOLE [Concomitant]
     Active Substance: OMEPRAZOLE
     Indication: Prophylaxis against gastrointestinal ulcer
     Dosage: 20 MG, 1X/DAY (20 MG, 1 IN 1 D)
     Route: 048
     Dates: start: 20230508

REACTIONS (1)
  - Pancreatitis acute [Recovered/Resolved]

NARRATIVE: CASE EVENT DATE: 20230705
